FAERS Safety Report 7977878-8 (Version None)
Quarter: 2011Q4

REPORT INFORMATION
  Report Type: 
  Country: None (occurrence: None)
  Receive Date: 20111214
  Receipt Date: 20111207
  Transmission Date: 20120403
  Serious: No
  Sender: FDA-Public Use
  Company Number: US-AMGEN-USASP2011049117

PATIENT
  Age: 56 Year
  Sex: Female

DRUGS (2)
  1. ENBREL [Suspect]
     Indication: PRODUCT USED FOR UNKNOWN INDICATION
     Dosage: 50 MG, QWK
  2. BYETTA [Concomitant]
     Dosage: UNK

REACTIONS (8)
  - INFECTION [None]
  - CELLULITIS [None]
  - JOINT SWELLING [None]
  - PAIN IN EXTREMITY [None]
  - BRONCHITIS [None]
  - SINUS OPERATION [None]
  - ARTHRALGIA [None]
  - SINUS DISORDER [None]
